FAERS Safety Report 9513256 (Version 1)
Quarter: 2013Q3

REPORT INFORMATION
  Report Type: Spontaneous
  Country: US (occurrence: US)
  Receive Date: 20130910
  Receipt Date: 20130910
  Transmission Date: 20140515
  Serious: No
  Sender: FDA-Public Use
  Company Number: US-009507513-1309USA003843

PATIENT
  Sex: Male
  Weight: 124 kg

DRUGS (2)
  1. SYLATRON [Suspect]
     Dosage: 3 MICROGRAM PER KILOGRAM, UNK
     Route: 058
  2. SYLATRON [Suspect]
     Dosage: 2 MICROGRAM PER KILOGRAM, UNK
     Route: 058

REACTIONS (2)
  - Adverse event [Unknown]
  - Weight decreased [Unknown]
